FAERS Safety Report 9203225 (Version 1)
Quarter: 2013Q2

REPORT INFORMATION
  Report Type: Report from Study
  Country: CA (occurrence: CA)
  Receive Date: 20130402
  Receipt Date: 20130402
  Transmission Date: 20140414
  Serious: Yes (Hospitalization)
  Sender: FDA-Public Use
  Company Number: CA-JNJFOC-20130316357

PATIENT
  Age: 29 Year
  Sex: Male
  Weight: 56 kg

DRUGS (4)
  1. REMICADE [Suspect]
     Indication: CROHN^S DISEASE
     Route: 042
     Dates: start: 20130204
  2. IMURAN [Concomitant]
     Route: 048
  3. CIPRO [Concomitant]
     Route: 065
  4. FLAGYL [Concomitant]
     Route: 065

REACTIONS (1)
  - Anal fistula [Recovered/Resolved]
